FAERS Safety Report 24204051 (Version 1)
Quarter: 2024Q3

REPORT INFORMATION
  Report Type: Spontaneous
  Country: ES (occurrence: ES)
  Receive Date: 20240813
  Receipt Date: 20240813
  Transmission Date: 20241017
  Serious: Yes (Other)
  Sender: RANBAXY
  Company Number: ES-AEMPS-1525786

PATIENT
  Age: 77 Year
  Sex: Female

DRUGS (3)
  1. MEROPENEM [Suspect]
     Active Substance: MEROPENEM
     Indication: Pyrexia
     Dosage: 1 GRAMO / 8 H
     Route: 040
     Dates: start: 20240306, end: 20240320
  2. CIPROFLOXACIN [Suspect]
     Active Substance: CIPROFLOXACIN
     Indication: Urinary tract infection
     Dosage: 500 MG / 12 H
     Route: 048
     Dates: start: 20240314, end: 20240316
  3. TARGOCID [Suspect]
     Active Substance: TEICOPLANIN
     Indication: Pyrexia
     Dosage: 400 MG /12H
     Route: 040
     Dates: start: 20240314, end: 20240320

REACTIONS (1)
  - Coombs negative haemolytic anaemia [Recovered/Resolved]

NARRATIVE: CASE EVENT DATE: 20240316
